FAERS Safety Report 9703855 (Version 1)
Quarter: 2013Q4

REPORT INFORMATION
  Report Type: Spontaneous
  Country: US (occurrence: None)
  Receive Date: 20131121
  Receipt Date: 20131121
  Transmission Date: 20140711
  Serious: No
  Sender: FDA-Public Use
  Company Number: None

PATIENT
  Age: 63 Year
  Sex: Male

DRUGS (1)
  1. CHANTIX 1MG PFIZER [Suspect]
     Indication: SMOKING CESSATION THERAPY
     Dosage: 1 TABLET TWICE DAILY TAKEN BY MOUTH
     Route: 048
     Dates: start: 20131001, end: 20131120

REACTIONS (5)
  - Erythema [None]
  - Dry skin [None]
  - Skin exfoliation [None]
  - Swelling [None]
  - Nausea [None]
